FAERS Safety Report 7753328-1 (Version None)
Quarter: 2011Q3

REPORT INFORMATION
  Report Type: 
  Country: None (occurrence: None)
  Receive Date: 20110915
  Receipt Date: 20110912
  Transmission Date: 20111222
  Serious: Yes (Hospitalization, Other)
  Sender: FDA-Public Use
  Company Number: JP-BRACCO-005127

PATIENT
  Sex: Female

DRUGS (7)
  1. IOPAMIDOL [Suspect]
     Indication: PRINZMETAL ANGINA
     Dosage: INFUSION RATE: 4.0 ML/SEC
     Route: 042
     Dates: start: 20110812, end: 20110812
  2. DILTIAZEM HCL [Concomitant]
     Dates: start: 20060101
  3. ZETIA [Concomitant]
     Dates: start: 20090901
  4. LANSOPRAZOLE [Concomitant]
     Dates: start: 20110101
  5. ZYRTEC [Concomitant]
     Dates: start: 20070101
  6. ZOLPIDEM [Concomitant]
     Dates: start: 20110301
  7. IOPAMIDOL [Suspect]
     Indication: COMPUTERISED TOMOGRAM
     Dosage: INFUSION RATE: 4.0 ML/SEC
     Route: 042
     Dates: start: 20110812, end: 20110812

REACTIONS (1)
  - CONTRAST MEDIA ALLERGY [None]
